FAERS Safety Report 8175109-X (Version None)
Quarter: 2012Q1

REPORT INFORMATION
  Report Type: 
  Country: None (occurrence: None)
  Receive Date: 20120229
  Receipt Date: 20120223
  Transmission Date: 20120608
  Serious: Yes (Hospitalization)
  Sender: FDA-Public Use
  Company Number: PHHO2011DE020573

PATIENT
  Sex: Female
  Weight: 62 kg

DRUGS (5)
  1. RAD001 [Suspect]
     Indication: LYMPHANGIOLEIOMYOMATOSIS
     Dosage: 10 MG, QD
     Route: 048
     Dates: start: 20111114, end: 20111116
  2. PLACEBO [Suspect]
     Indication: LYMPHANGIOLEIOMYOMATOSIS
     Dosage: DOUBLE BLIND
  3. RAD001 [Suspect]
     Dosage: 10 MG, QD
     Route: 048
     Dates: start: 20111228
  4. AFINITOR [Suspect]
     Indication: LYMPHANGIOLEIOMYOMATOSIS
     Dosage: DOUBLE BLIND
  5. BLINDED NO TREATMENT RECEIVED [Suspect]
     Indication: LYMPHANGIOLEIOMYOMATOSIS
     Dosage: DOUBLE BLIND

REACTIONS (1)
  - PNEUMONIA [None]
